FAERS Safety Report 4751323-8 (Version None)
Quarter: 2005Q3

REPORT INFORMATION
  Report Type: 
  Country: None (occurrence: None)
  Receive Date: 20050823
  Receipt Date: 20050823
  Transmission Date: 20060218
  Serious: Yes (Hospitalization)
  Sender: FDA-Public Use
  Company Number: None

PATIENT
  Age: 69 Year
  Sex: Male

DRUGS (1)
  1. COUMADIN [Suspect]
     Indication: AORTIC VALVE REPLACEMENT

REACTIONS (2)
  - HAEMORRHAGE INTRACRANIAL [None]
  - INJURY [None]
